FAERS Safety Report 8802608 (Version 2)
Quarter: 2015Q1

REPORT INFORMATION
  Report Type: Report from Study
  Country: US (occurrence: US)
  Receive Date: 20120921
  Receipt Date: 20150302
  Transmission Date: 20150721
  Serious: Yes (Death)
  Sender: FDA-Public Use
  Company Number: US-ROCHE-1092104

PATIENT
  Age: 54 Year
  Sex: Female
  Weight: 62.8 kg

DRUGS (7)
  1. AVASTIN [Suspect]
     Active Substance: BEVACIZUMAB
     Indication: BONE CANCER
  2. DECADRON [Concomitant]
     Active Substance: DEXAMETHASONE
     Route: 042
  3. AVASTIN [Suspect]
     Active Substance: BEVACIZUMAB
     Indication: BREAST CANCER FEMALE
     Route: 042
     Dates: start: 20081021
  4. DECADRON [Concomitant]
     Active Substance: DEXAMETHASONE
     Route: 042
  5. PROCRIT [Concomitant]
     Active Substance: ERYTHROPOIETIN
     Dosage: 40000 UNIT
     Route: 058
  6. ABRAXANE [Concomitant]
     Active Substance: PACLITAXEL
     Route: 042
  7. ABRAXANE [Concomitant]
     Active Substance: PACLITAXEL
     Route: 042

REACTIONS (10)
  - Insomnia [Recovered/Resolved]
  - Hypoacusis [Unknown]
  - Oedema peripheral [Recovered/Resolved]
  - Death [Fatal]
  - Fatigue [Recovered/Resolved]
  - Nail discolouration [Unknown]
  - Pain in extremity [Recovered/Resolved]
  - Mouth ulceration [Recovered/Resolved]
  - Hypochromasia [Unknown]
  - Alopecia [Recovering/Resolving]

NARRATIVE: CASE EVENT DATE: 200909
